FAERS Safety Report 21303069 (Version 1)
Quarter: 2022Q3

REPORT INFORMATION
  Report Type: Spontaneous
  Country: US (occurrence: None)
  Receive Date: 20220907
  Receipt Date: 20220907
  Transmission Date: 20221027
  Serious: Yes (Other)
  Sender: FDA-Public Use
  Company Number: None

PATIENT
  Age: 71 Year
  Sex: Male
  Weight: 104 kg

DRUGS (2)
  1. WARFARIN [Suspect]
     Active Substance: WARFARIN
  2. Diclofenac 75mg EC tablet [Concomitant]
     Dates: start: 20220728

REACTIONS (7)
  - Cerebrovascular accident [None]
  - Muscular weakness [None]
  - Muscular weakness [None]
  - Mobility decreased [None]
  - Cerebral haematoma [None]
  - Brain oedema [None]
  - Cerebral infarction [None]

NARRATIVE: CASE EVENT DATE: 20220830
